FAERS Safety Report 5385962-0 (Version None)
Quarter: 2007Q3

REPORT INFORMATION
  Report Type: 
  Country: None (occurrence: None)
  Receive Date: 20070712
  Receipt Date: 20070706
  Transmission Date: 20080115
  Serious: Yes (Disabling)
  Sender: FDA-Public Use
  Company Number: US-MERCK-0705USA01962

PATIENT
  Age: 57 Year
  Sex: Male
  Weight: 94 kg

DRUGS (9)
  1. VYTORIN [Suspect]
     Indication: HYPERLIPIDAEMIA
     Route: 048
     Dates: start: 20070401, end: 20070503
  2. AVAPRO [Concomitant]
     Indication: HYPERTENSION
     Route: 065
  3. HYDRODIURIL [Concomitant]
     Indication: HYPERTENSION
     Route: 065
  4. AMBIEN [Concomitant]
     Route: 065
  5. DAYPRO [Concomitant]
     Route: 065
  6. POTASSIUM (UNSPECIFIED) [Concomitant]
     Route: 065
  7. ALLEGRA [Concomitant]
     Route: 065
  8. PROZAC [Concomitant]
     Indication: ANXIETY
     Route: 065
  9. SINGULAIR [Concomitant]
     Indication: HYPERSENSITIVITY
     Route: 065

REACTIONS (1)
  - MUSCLE SPASMS [None]
